FAERS Safety Report 23798370 (Version 1)
Quarter: 2024Q2

REPORT INFORMATION
  Report Type: Spontaneous
  Country: CN (occurrence: CN)
  Receive Date: 20240430
  Receipt Date: 20240430
  Transmission Date: 20240716
  Serious: Yes (Hospitalization, Other)
  Sender: FDA-Public Use
  Company Number: None

PATIENT
  Age: 47 Year
  Sex: Female
  Weight: 48 kg

DRUGS (6)
  1. CYCLOPHOSPHAMIDE [Suspect]
     Active Substance: CYCLOPHOSPHAMIDE
     Indication: Non-Hodgkin^s lymphoma
     Dosage: 0.8 G/TIME, ONCE A DAY, ANTI-TUMOR TREATMENT
     Route: 041
     Dates: start: 20240418, end: 20240418
  2. CYCLOPHOSPHAMIDE [Suspect]
     Active Substance: CYCLOPHOSPHAMIDE
     Dosage: UNK, START DATE: APR-2024, 1 COURSE OF ADJUSTED RCHOP REGIMEN
     Route: 065
  3. RITUXIMAB [Suspect]
     Active Substance: RITUXIMAB
     Indication: Non-Hodgkin^s lymphoma
     Dosage: UNK, START DATE: APR-2024, 1 COURSE OF ADJUSTED RCHOP REGIMEN
     Route: 065
  4. DOXORUBICIN [Suspect]
     Active Substance: DOXORUBICIN
     Indication: Non-Hodgkin^s lymphoma
     Dosage: UNK, START DATE: APR-2024, 1 COURSE OF ADJUSTED RCHOP REGIMEN
     Route: 065
  5. VINCRISTINE [Suspect]
     Active Substance: VINCRISTINE
     Indication: Non-Hodgkin^s lymphoma
     Dosage: UNK, START DATE: APR-2024, 1 COURSE OF ADJUSTED RCHOP REGIMEN
     Route: 065
  6. PREDNISOLONE [Suspect]
     Active Substance: PREDNISOLONE
     Indication: Non-Hodgkin^s lymphoma
     Dosage: UNK, START DATE: APR-2024, 1 COURSE OF ADJUSTED RCHOP REGIMEN
     Route: 065

REACTIONS (7)
  - Renal hydrocele [Unknown]
  - Disease complication [Unknown]
  - Myelosuppression [Unknown]
  - White blood cell count decreased [Recovering/Resolving]
  - Pelvic venous thrombosis [Unknown]
  - Vomiting [Recovering/Resolving]
  - Nausea [Recovering/Resolving]

NARRATIVE: CASE EVENT DATE: 20240420
